FAERS Safety Report 10507884 (Version 6)
Quarter: 2020Q4

REPORT INFORMATION
  Report Type: Report from Study
  Country: US (occurrence: US)
  Receive Date: 20141009
  Receipt Date: 20201203
  Transmission Date: 20210113
  Serious: Yes (Disabling, Other)
  Sender: FDA-Public Use
  Company Number: US-SANOFI-AVENTIS-2012SA094823

PATIENT
  Sex: Female

DRUGS (3)
  1. TERIFLUNOMIDE. [Suspect]
     Active Substance: TERIFLUNOMIDE
     Dosage: 14 MG,QD
     Route: 048
     Dates: start: 2015
  2. TERIFLUNOMIDE. [Suspect]
     Active Substance: TERIFLUNOMIDE
     Indication: MULTIPLE SCLEROSIS
     Dosage: 14 MG,QD
     Route: 048
     Dates: start: 20121211, end: 201501
  3. TERIFLUNOMIDE. [Suspect]
     Active Substance: TERIFLUNOMIDE
     Dosage: 14 MG, QD
     Route: 048
     Dates: start: 20201119

REACTIONS (8)
  - Nasopharyngitis [Not Recovered/Not Resolved]
  - COVID-19 [Unknown]
  - Cold sweat [Unknown]
  - Alopecia [Unknown]
  - Constipation [Unknown]
  - Unevaluable event [Unknown]
  - Monoparesis [Unknown]
  - Pain in jaw [Unknown]

NARRATIVE: CASE EVENT DATE: 2020
